FAERS Safety Report 11821928 (Version 1)
Quarter: 2015Q4

REPORT INFORMATION
  Report Type: Spontaneous
  Country: US (occurrence: US)
  Receive Date: 20151210
  Receipt Date: 20151210
  Transmission Date: 20160305
  Serious: No
  Sender: FDA-Public Use
  Company Number: US-JNJFOC-20150805552

PATIENT
  Sex: Female

DRUGS (8)
  1. IMBRUVICA [Suspect]
     Active Substance: IBRUTINIB
     Indication: CHRONIC LYMPHOCYTIC LEUKAEMIA
     Route: 048
  2. IMBRUVICA [Suspect]
     Active Substance: IBRUTINIB
     Indication: CHRONIC LYMPHOCYTIC LEUKAEMIA
     Route: 048
     Dates: start: 20150619
  3. CARVEDILOL. [Interacting]
     Active Substance: CARVEDILOL
     Indication: PRODUCT USED FOR UNKNOWN INDICATION
  4. RANITIDINE [Concomitant]
     Active Substance: RANITIDINE\RANITIDINE HYDROCHLORIDE
  5. ELIQUIS [Concomitant]
     Active Substance: APIXABAN
  6. ALEVE [Concomitant]
     Active Substance: NAPROXEN SODIUM
  7. LEVOTHROID [Concomitant]
     Active Substance: LEVOTHYROXINE SODIUM
  8. BUMETANIDE. [Concomitant]
     Active Substance: BUMETANIDE

REACTIONS (2)
  - Drug interaction [Unknown]
  - Dizziness postural [Unknown]

NARRATIVE: CASE EVENT DATE: 2015
